FAERS Safety Report 6003155-0 (Version None)
Quarter: 2008Q4

REPORT INFORMATION
  Report Type: 
  Country: None (occurrence: None)
  Receive Date: 20081216
  Receipt Date: 20081209
  Transmission Date: 20090506
  Serious: No
  Sender: FDA-Public Use
  Company Number: FR-JNJFOC-20081202413

PATIENT
  Age: 55 Year
  Sex: Female

DRUGS (3)
  1. DURAGESIC-100 [Suspect]
     Indication: PAIN
     Dosage: DOSE: 2X100?G/HR + 1X25?G/HR = 225?G/HR
     Route: 062
  2. ANTIBIOTIC [Concomitant]
     Indication: WOUND
  3. MORPHINE [Concomitant]

REACTIONS (2)
  - DRUG INEFFECTIVE [None]
  - INCORRECT DRUG ADMINISTRATION DURATION [None]
